FAERS Safety Report 7670726-5 (Version None)
Quarter: 2011Q3

REPORT INFORMATION
  Report Type: 
  Country: None (occurrence: None)
  Receive Date: 20110809
  Receipt Date: 20110727
  Transmission Date: 20111222
  Serious: No
  Sender: FDA-Public Use
  Company Number: US-BIOGENIDEC-2011BI028111

PATIENT
  Sex: Female

DRUGS (3)
  1. AVONEX [Suspect]
     Route: 030
     Dates: start: 20060101, end: 20060901
  2. AVONEX [Suspect]
     Route: 030
     Dates: start: 20080801, end: 20101001
  3. AVONEX [Suspect]
     Indication: MULTIPLE SCLEROSIS
     Route: 030
     Dates: start: 20110515

REACTIONS (3)
  - PAIN [None]
  - BACK PAIN [None]
  - INSOMNIA [None]
